FAERS Safety Report 9130483 (Version 6)
Quarter: 2013Q3

REPORT INFORMATION
  Report Type: Spontaneous
  Country: US (occurrence: US)
  Receive Date: 20130301
  Receipt Date: 20130731
  Transmission Date: 20140515
  Serious: Yes (Hospitalization)
  Sender: FDA-Public Use
  Company Number: US-BIOGENIDEC-2013BI019403

PATIENT
  Age: 54 Year
  Sex: Female

DRUGS (6)
  1. TYSABRI [Suspect]
     Indication: MULTIPLE SCLEROSIS
     Route: 042
     Dates: start: 20120618
  2. ZOLOFT [Concomitant]
     Indication: DEPRESSION
  3. AMANTADINE [Concomitant]
     Indication: FATIGUE
  4. MVI [Concomitant]
  5. FISH OIL [Concomitant]
  6. CALCIUM [Concomitant]

REACTIONS (5)
  - Wound infection [Unknown]
  - Lumbar radiculopathy [Recovered/Resolved]
  - Intervertebral disc protrusion [Recovered/Resolved]
  - Upper respiratory tract infection [Recovered/Resolved]
  - Urinary tract infection [Recovered/Resolved]
